FAERS Safety Report 24544386 (Version 2)
Quarter: 2024Q4

REPORT INFORMATION
  Report Type: Spontaneous
  Country: CH (occurrence: CH)
  Receive Date: 20241024
  Receipt Date: 20241111
  Transmission Date: 20250114
  Serious: Yes (Hospitalization)
  Sender: AMERICAN REGENT
  Company Number: CH-AMERICAN REGENT INC-2024003971

PATIENT
  Age: 91 Year
  Sex: Female

DRUGS (9)
  1. FERINJECT [Suspect]
     Active Substance: FERRIC CARBOXYMALTOSE
     Indication: Mineral supplementation
     Dosage: 500 MILLIGRAM
     Dates: start: 20240725, end: 20240725
  2. FERINJECT [Suspect]
     Active Substance: FERRIC CARBOXYMALTOSE
     Dosage: 500 MILLIGRAM
     Dates: start: 20240805, end: 20240805
  3. CANDESARTAN CILEXETIL\HYDROCHLOROTHIAZIDE [Suspect]
     Active Substance: CANDESARTAN CILEXETIL\HYDROCHLOROTHIAZIDE
     Indication: Hypertension
     Dosage: 1 DRUG DISPENSATION: 32/25 MG. START DATE OF THERAPY UNKNOWN (CHRONIC THERAPY) (1 DOSAGE FORMS,1 IN
     Route: 048
     Dates: end: 20240815
  4. TAMBOCOR [Concomitant]
     Active Substance: FLECAINIDE ACETATE
     Indication: Product used for unknown indication
     Dosage: CHRONIC THERAPY (50 MILLIGRAM, 1 IN 1 D)
     Route: 048
  5. ELIQUIS [Concomitant]
     Active Substance: APIXABAN
     Indication: Product used for unknown indication
     Dosage: CHRONIC THERAPY 2.5 MG TWICE DAILY (2.5 MG, 1 IN 12HR)
     Route: 048
  6. PANTOZOL [Concomitant]
     Active Substance: PANTOPRAZOLE SODIUM
     Indication: Product used for unknown indication
     Dosage: CHRONIC THERAPY (40 MILLIGRAM, 1 IN 1 D)
     Route: 048
  7. MEMANTINE [Concomitant]
     Active Substance: MEMANTINE
     Indication: Product used for unknown indication
     Dosage: CHRONIC THERAPY (20 MILLIGRAM, 1 IN 1D)
     Route: 048
  8. MONTELUKAST SODIUM [Concomitant]
     Active Substance: MONTELUKAST SODIUM
     Indication: Product used for unknown indication
     Dosage: 10 MILLIGRAM, 1 IN 1D
     Route: 048
  9. FOSTER [Concomitant]
     Active Substance: BECLOMETHASONE\FORMOTEROL
     Indication: Product used for unknown indication
     Dosage: CHRONIC THERAPY. 100/6 DOSIER-AEROSOL INHALATIONS TWICE DAILY (1 DOSAGE FORM, 1 IN 12 HR)
     Route: 055

REACTIONS (5)
  - Hyponatraemia [Recovered/Resolved]
  - Hypophosphataemia [Recovered/Resolved]
  - Nausea [Unknown]
  - Vomiting [Unknown]
  - Asthenia [Unknown]

NARRATIVE: CASE EVENT DATE: 20240801
